FAERS Safety Report 8849441 (Version 2)
Quarter: 2013Q2

REPORT INFORMATION
  Report Type: Spontaneous
  Country: US (occurrence: None)
  Receive Date: 20120426
  Receipt Date: 20120703
  Transmission Date: 20140414
  Serious: No
  Sender: FDA-Public Use
  Company Number: PHEH2012US004233

PATIENT
  Age: 41 Year
  Sex: Female

DRUGS (11)
  1. GILENYA [Suspect]
     Indication: MULTIPLE SCLEROSIS
     Route: 048
     Dates: start: 20120217
  2. CARDIZEM - SLOW RELEASE (DILTIAZEM HYDROCHLORIDE) [Concomitant]
  3. NEURONTIN (GABAPENTIN) [Concomitant]
  4. LEVOTHYROXINE (LEVOTHYROXINE) [Concomitant]
  5. BACLOFEN (BACLOFEN) [Concomitant]
  6. RITALIN (METHYLPHENIDATE HYDROCHLORIDE) [Concomitant]
  7. PROTONIX (PANTOPRAZOLE) [Concomitant]
  8. SPIRONOLACTONE (SPIRONOLACTONE) [Concomitant]
  9. BENTYL (DICYCLOVERINE HYDROCHLORIDE) [Concomitant]
  10. CLARITIN (LORATADINE) [Concomitant]
  11. CLINDAMYCIN (CLINDAMYCIN) [Concomitant]

REACTIONS (7)
  - Feeling jittery [None]
  - Nervousness [None]
  - Nausea [None]
  - Dizziness [None]
  - Dyspnoea [None]
  - Heart rate decreased [None]
  - Blood pressure decreased [None]
